FAERS Safety Report 9660180 (Version 2)
Quarter: 2013Q4

REPORT INFORMATION
  Report Type: Spontaneous
  Country: AT (occurrence: AT)
  Receive Date: 20131031
  Receipt Date: 20131112
  Transmission Date: 20140711
  Serious: Yes (Hospitalization, Other)
  Sender: FDA-Public Use
  Company Number: AT-009507513-1310AUT014613

PATIENT
  Age: 73 Year
  Sex: Female
  Weight: 75 kg

DRUGS (5)
  1. PEGINTRON [Suspect]
     Indication: CHRONIC HEPATITIS C
     Dosage: UNK, QW
     Route: 058
     Dates: start: 20130927, end: 20131028
  2. REBETOL [Suspect]
     Indication: CHRONIC HEPATITIS C
     Dosage: 200 MG, 5 TIMES PER DAY, 2/0/3
     Route: 048
     Dates: start: 20130927, end: 20131028
  3. TELAPREVIR [Suspect]
     Indication: CHRONIC HEPATITIS C
     Dosage: UNK
     Dates: start: 2013, end: 2013
  4. THYREX [Concomitant]
     Indication: HYPOTHYROIDISM
     Dosage: 0.5/0/0
     Route: 048
  5. SIFROL [Concomitant]
     Indication: RESTLESS LEGS SYNDROME
     Dosage: 0/0/1.5
     Route: 048

REACTIONS (1)
  - Pulmonary embolism [Recovering/Resolving]
